FAERS Safety Report 19837654 (Version 1)
Quarter: 2021Q3

REPORT INFORMATION
  Report Type: Spontaneous
  Country: AU (occurrence: AU)
  Receive Date: 20210916
  Receipt Date: 20210916
  Transmission Date: 20211014
  Serious: Yes (Hospitalization)
  Sender: FDA-Public Use
  Company Number: AU-TEVA-2021-AU-1952344

PATIENT
  Age: 48 Year
  Sex: Male

DRUGS (4)
  1. MIRTAZAPINE. [Concomitant]
     Active Substance: MIRTAZAPINE
     Indication: MAJOR DEPRESSION
     Dosage: 45 MILLIGRAM DAILY;
     Route: 065
  2. MODAFINIL. [Suspect]
     Active Substance: MODAFINIL
     Indication: ATTENTION DEFICIT HYPERACTIVITY DISORDER
     Dosage: 400?800 MG DAILY FOR 4 DAYS
     Route: 065
  3. ALLOPURINOL. [Concomitant]
     Active Substance: ALLOPURINOL
     Indication: GOUT
     Dosage: 100 MILLIGRAM DAILY;
     Route: 065
  4. DEXAMFETAMINE [Concomitant]
     Active Substance: DEXTROAMPHETAMINE
     Indication: ATTENTION DEFICIT HYPERACTIVITY DISORDER
     Dosage: 40 MILLIGRAM DAILY;
     Route: 065

REACTIONS (3)
  - Intentional overdose [Recovered/Resolved]
  - Substance-induced psychotic disorder [Recovered/Resolved]
  - Intentional product misuse [Recovered/Resolved]
